FAERS Safety Report 21839595 (Version 1)
Quarter: 2023Q1

REPORT INFORMATION
  Report Type: Report from Study
  Country: US (occurrence: US)
  Receive Date: 20230109
  Receipt Date: 20230109
  Transmission Date: 20230418
  Serious: Yes (Other)
  Sender: FDA-Public Use
  Company Number: US-ABBVIE-4261323

PATIENT
  Sex: Male

DRUGS (1)
  1. HUMIRA [Suspect]
     Active Substance: ADALIMUMAB
     Indication: Pain in extremity
     Route: 058

REACTIONS (3)
  - Neoplasm malignant [Unknown]
  - SARS-CoV-2 test positive [Unknown]
  - Pain [Unknown]
